FAERS Safety Report 25723880 (Version 2)
Quarter: 2025Q3

REPORT INFORMATION
  Report Type: Spontaneous
  Country: US (occurrence: US)
  Receive Date: 20250825
  Receipt Date: 20250919
  Transmission Date: 20251020
  Serious: No
  Sender: CALLIDITAS THERAPEUTICS AB
  Company Number: US-Calliditas-2025CAL02507

PATIENT
  Age: 75 Year
  Sex: Male

DRUGS (6)
  1. TARPEYO [Suspect]
     Active Substance: BUDESONIDE
     Indication: IgA nephropathy
     Route: 048
     Dates: start: 20250719
  2. COZAAR [Concomitant]
     Active Substance: LOSARTAN POTASSIUM
  3. FLOMAX [Concomitant]
     Active Substance: TAMSULOSIN HYDROCHLORIDE
  4. LOVASTATIN [Concomitant]
     Active Substance: LOVASTATIN
  5. WARFARIN [Concomitant]
     Active Substance: WARFARIN
  6. COREG [Concomitant]
     Active Substance: CARVEDILOL

REACTIONS (3)
  - Peripheral swelling [Not Recovered/Not Resolved]
  - Muscle spasms [Not Recovered/Not Resolved]
  - Urine output increased [Unknown]
